FAERS Safety Report 7978527-5 (Version None)
Quarter: 2011Q4

REPORT INFORMATION
  Report Type: 
  Country: None (occurrence: None)
  Receive Date: 20111214
  Receipt Date: 20111206
  Transmission Date: 20120403
  Serious: Yes (Other)
  Sender: FDA-Public Use
  Company Number: US-JNJFOC-20111204852

PATIENT
  Age: 56 Year
  Sex: Male

DRUGS (5)
  1. RALTEGRAVIR [Suspect]
     Indication: ANTIVIRAL TREATMENT
     Route: 065
  2. EMTRICITABINE [Suspect]
     Indication: ANTIVIRAL TREATMENT
     Route: 065
  3. RITONAVIR [Suspect]
     Indication: ANTIVIRAL TREATMENT
     Route: 065
  4. DARUNAVIR ETHANOLATE [Suspect]
     Indication: ANTIVIRAL TREATMENT
     Route: 065
  5. TENOFOVIR DISOPROXIL FUMARATE [Suspect]
     Indication: ANTIVIRAL TREATMENT
     Route: 065

REACTIONS (1)
  - HEPATITIS C [None]
